FAERS Safety Report 7548936-7 (Version None)
Quarter: 2011Q2

REPORT INFORMATION
  Report Type: 
  Country: None (occurrence: None)
  Receive Date: 20110615
  Receipt Date: 20110609
  Transmission Date: 20111010
  Serious: Yes (Other)
  Sender: FDA-Public Use
  Company Number: BR-ROCHE-697984

PATIENT
  Sex: Female
  Weight: 66 kg

DRUGS (28)
  1. CLONAZEPAM [Suspect]
     Indication: SLEEP DISORDER
     Route: 065
  2. RITUXIMAB [Suspect]
     Route: 042
     Dates: start: 20110601, end: 20110601
  3. FOLIC ACID [Concomitant]
     Dosage: 5 TIMES PER ONE WEEK (WED TO SUND)
  4. OMEPRAZOLE [Concomitant]
     Indication: PROPHYLAXIS
  5. RITUXIMAB [Suspect]
     Indication: RHEUMATOID ARTHRITIS
     Dosage: FORM: INFUSION. DOSE REPORTED AS 1000 MG/ML
     Route: 042
     Dates: start: 20080801, end: 20080801
  6. CELEBREX [Concomitant]
  7. FLUIR [Concomitant]
  8. RITUXIMAB [Suspect]
     Dosage: DOSE 1000 MG/ML
     Route: 042
     Dates: start: 20090805, end: 20090820
  9. RITUXIMAB [Suspect]
     Dosage: DOSE: 1000 MG/ML
     Route: 042
     Dates: end: 20100804
  10. CHLOROQUINE [Suspect]
     Indication: RHEUMATOID ARTHRITIS
     Route: 065
  11. ARAVA [Concomitant]
  12. TANDRILAX [Concomitant]
  13. DILACORON [Concomitant]
     Indication: HYPERTENSION
     Dosage: DILACORON AP
  14. SPIRIVA [Concomitant]
     Indication: ASTHMA
  15. ALENIA [Concomitant]
     Indication: ASTHMA
  16. SINGULAIR [Concomitant]
     Indication: ASTHMA
  17. METHOTREXATE [Concomitant]
     Indication: RHEUMATOID ARTHRITIS
     Dosage: MON TO WED. TECHNOMET
  18. PREDNISOLONE [Concomitant]
  19. CLONAZEPAM [Suspect]
     Route: 065
  20. RITUXIMAB [Suspect]
     Dosage: DOSE 1000 MG/ML
     Route: 042
     Dates: start: 20090701, end: 20090715
  21. DEFLAZACORT [Concomitant]
  22. THEOPHYLLINE [Concomitant]
     Indication: ASTHMA
  23. LEUCOGEN [Concomitant]
     Indication: ASTHMA
     Dosage: LEOCOGEN
  24. LABIRIN [Concomitant]
  25. RITUXIMAB [Suspect]
     Route: 042
     Dates: start: 20110518, end: 20110518
  26. ENALAPRIL MALEATE [Concomitant]
     Indication: HYPERTENSION
  27. CEBRILIN [Concomitant]
  28. MARAX [Concomitant]
     Indication: ASTHMA

REACTIONS (24)
  - PNEUMONIA [None]
  - NAUSEA [None]
  - INSOMNIA [None]
  - HIATUS HERNIA [None]
  - ARTHRALGIA [None]
  - ANXIETY [None]
  - PAIN [None]
  - WEIGHT DECREASED [None]
  - EYE PAIN [None]
  - HYPOGLYCAEMIA [None]
  - BURNING SENSATION [None]
  - DEPRESSED MOOD [None]
  - HYPERHIDROSIS [None]
  - DUODENAL ULCER [None]
  - BLOOD GLUCOSE FLUCTUATION [None]
  - DRUG INEFFECTIVE [None]
  - DIZZINESS [None]
  - JOINT SWELLING [None]
  - HEADACHE [None]
  - GLAUCOMA [None]
  - RHEUMATOID ARTHRITIS [None]
  - OEDEMA PERIPHERAL [None]
  - EYE DISORDER [None]
  - VISUAL IMPAIRMENT [None]
